FAERS Safety Report 11643812 (Version 1)
Quarter: 2015Q4

REPORT INFORMATION
  Report Type: Report from Study
  Country: US (occurrence: US)
  Receive Date: 20151020
  Receipt Date: 20151020
  Transmission Date: 20160304
  Serious: Yes (Other)
  Sender: FDA-Public Use
  Company Number: US-BIOGENIDEC-2015BI140867

PATIENT
  Age: 52 Year
  Sex: Female
  Weight: 62 kg

DRUGS (3)
  1. TECFIDERA [Suspect]
     Active Substance: DIMETHYL FUMARATE
     Indication: MULTIPLE SCLEROSIS
     Route: 048
     Dates: start: 201501
  2. GABAPENTIN. [Concomitant]
     Active Substance: GABAPENTIN
  3. PHENYTOIN. [Concomitant]
     Active Substance: PHENYTOIN

REACTIONS (4)
  - Weight decreased [Unknown]
  - Flushing [Recovered/Resolved]
  - Pruritus [Recovered/Resolved]
  - Appendicitis perforated [Unknown]
